FAERS Safety Report 6699490-3 (Version None)
Quarter: 2010Q2

REPORT INFORMATION
  Report Type: 
  Country: None (occurrence: None)
  Receive Date: 20100426
  Receipt Date: 20100408
  Transmission Date: 20101027
  Serious: Yes (Hospitalization, Other)
  Sender: FDA-Public Use
  Company Number: JP-SOLVAY-00310001977

PATIENT
  Age: 51 Year
  Sex: Male

DRUGS (7)
  1. FLUVOXAMINE MALEATE [Suspect]
     Indication: SCHIZOPHRENIA
     Route: 048
  2. MIKELAN (CARTEOLOL HYDROCHLORIDE) [Suspect]
     Indication: DRUG USE FOR UNKNOWN INDICATION
  3. QUETIAPINE (QUETIAPINE) [Suspect]
     Indication: DRUG USE FOR UNKNOWN INDICATION
  4. FLUNITRAZEPAM (FLUNITRAZEPAM) [Suspect]
     Indication: DRUG USE FOR UNKNOWN INDICATION
  5. TWO UNSPECIFIED NEUROLEPTICS [Concomitant]
  6. UNSPECIFIED ANTICHOLINERGIC [Concomitant]
  7. UNSPECIFIED BENZODIAZEPINE [Concomitant]

REACTIONS (7)
  - BRADYCARDIA [None]
  - CARDIO-RESPIRATORY ARREST [None]
  - DRUG INTERACTION [None]
  - DRUG TOXICITY [None]
  - ELECTROCARDIOGRAM QT PROLONGED [None]
  - ELECTROMECHANICAL DISSOCIATION [None]
  - LOSS OF CONSCIOUSNESS [None]
